FAERS Safety Report 6569170-3 (Version None)
Quarter: 2010Q1

REPORT INFORMATION
  Report Type: 
  Country: None (occurrence: None)
  Receive Date: 20100201
  Receipt Date: 20100201
  Transmission Date: 20100710
  Serious: Yes (Life-Threatening)
  Sender: FDA-Public Use
  Company Number: None

PATIENT

DRUGS (3)
  1. EPTIFIBATIDE [Suspect]
     Indication: CARDIOVASCULAR DISORDER
     Dates: start: 20091202, end: 20091202
  2. EPTIFIBATIDE [Suspect]
     Indication: SURGERY
     Dates: start: 20091202, end: 20091202
  3. CLOPIDOGREL [Suspect]
     Indication: MYOCARDIAL INFARCTION
     Dosage: 75 MG EVERY DAY PO
     Route: 048
     Dates: start: 20091103

REACTIONS (1)
  - HAEMORRHAGE [None]
